FAERS Safety Report 12765113 (Version 1)
Quarter: 2016Q3

REPORT INFORMATION
  Report Type: Spontaneous
  Country: US (occurrence: US)
  Receive Date: 20160921
  Receipt Date: 20160921
  Transmission Date: 20161109
  Serious: No
  Sender: FDA-Public Use
  Company Number: US-TEVA-675388USA

PATIENT
  Sex: Male

DRUGS (1)
  1. NEFAZODONE [Suspect]
     Active Substance: NEFAZODONE
     Dosage: 200 MILLIGRAM DAILY;
     Dates: start: 1997

REACTIONS (4)
  - Feeling abnormal [Unknown]
  - Malaise [Unknown]
  - Drug hypersensitivity [Unknown]
  - Withdrawal syndrome [Unknown]
